FAERS Safety Report 8069502-3 (Version None)
Quarter: 2012Q1

REPORT INFORMATION
  Report Type: 
  Country: None (occurrence: None)
  Receive Date: 20120125
  Receipt Date: 20120116
  Transmission Date: 20120608
  Serious: Yes (Life-Threatening, Other)
  Sender: FDA-Public Use
  Company Number: TR-US-EMD SERONO, INC.-7106983

PATIENT
  Age: 28 Year
  Sex: Female

DRUGS (5)
  1. OVIDREL [Suspect]
     Indication: IN VITRO FERTILISATION
  2. ASPIRIN [Suspect]
     Indication: PRODUCT USED FOR UNKNOWN INDICATION
  3. GONAL-F [Suspect]
     Indication: IN VITRO FERTILISATION
     Route: 058
  4. ORAL CONTRACEPTIVE [Suspect]
     Indication: CONTRACEPTION
     Route: 048
  5. LEUPROLIDE ACETATE [Suspect]
     Indication: PRODUCT USED FOR UNKNOWN INDICATION

REACTIONS (8)
  - TWIN PREGNANCY [None]
  - NORMAL NEWBORN [None]
  - MATERNAL EXPOSURE DURING PREGNANCY [None]
  - CHOLESTASIS [None]
  - OVARIAN HYPERSTIMULATION SYNDROME [None]
  - GESTATIONAL HYPERTENSION [None]
  - HYPOVOLAEMIA [None]
  - MALNUTRITION [None]
